FAERS Safety Report 4335317-2 (Version None)
Quarter: 2004Q2

REPORT INFORMATION
  Report Type: 
  Country: None (occurrence: None)
  Receive Date: 20040408
  Receipt Date: 20040408
  Transmission Date: 20050107
  Serious: Yes (Hospitalization)
  Sender: FDA-Public Use
  Company Number: None

PATIENT
  Age: 65 Year
  Sex: Female

DRUGS (9)
  1. CYCLOPHOSPHAMIDE [Suspect]
     Dosage: 4224 MG IV
     Route: 042
  2. FUROSEMIDE [Concomitant]
  3. PROMETHAZINE [Concomitant]
  4. CYCLOSPORINE [Concomitant]
  5. ACETAMINOPHEN [Concomitant]
  6. DIPHENHYDRAMINE HCL [Concomitant]
  7. MESNA [Concomitant]
  8. CHLORHEXADINE TOPICAL [Concomitant]
  9. FLUDABINE [Concomitant]

REACTIONS (1)
  - CARDIAC FAILURE CONGESTIVE [None]
